FAERS Safety Report 14588753 (Version 4)
Quarter: 2018Q2

REPORT INFORMATION
  Report Type: Spontaneous
  Country: US (occurrence: US)
  Receive Date: 20180301
  Receipt Date: 20180417
  Transmission Date: 20180711
  Serious: Yes (Hospitalization, Other)
  Sender: FDA-Public Use
  Company Number: US-ACTELION-A-NJ2018-168182

PATIENT
  Age: 13 Month
  Sex: Male

DRUGS (6)
  1. TRACLEER [Suspect]
     Active Substance: BOSENTAN
     Indication: PULMONARY HYPERTENSION
     Dosage: 3.5 ML, BID (TABLET DISOLVED IN 10ML WATER)
     Route: 048
     Dates: start: 20170925
  2. QVAR [Concomitant]
     Active Substance: BECLOMETHASONE DIPROPIONATE
     Dosage: 40 MG, BID
  3. TRACLEER [Suspect]
     Active Substance: BOSENTAN
     Dosage: 21.875 MG, BID
     Route: 048
     Dates: end: 20180329
  4. OXYGEN. [Concomitant]
     Active Substance: OXYGEN
  5. TRACLEER [Suspect]
     Active Substance: BOSENTAN
     Dosage: 21 MG, BID
     Route: 048
     Dates: end: 20180329
  6. ALBUTEROL. [Concomitant]
     Active Substance: ALBUTEROL
     Dosage: 1 AMPULE NEBULIZER , BID

REACTIONS (9)
  - Viral infection [Recovering/Resolving]
  - Hepatitis viral [Recovering/Resolving]
  - Rhinovirus infection [Unknown]
  - Upper respiratory tract infection [Unknown]
  - Aspartate aminotransferase increased [Unknown]
  - Alanine aminotransferase increased [Unknown]
  - Vomiting [Recovering/Resolving]
  - Transaminases increased [Recovering/Resolving]
  - Hepatic enzyme increased [Unknown]

NARRATIVE: CASE EVENT DATE: 20180219
